FAERS Safety Report 15256869 (Version 1)
Quarter: 2018Q3

REPORT INFORMATION
  Report Type: Spontaneous
  Country: US (occurrence: US)
  Receive Date: 20180718
  Receipt Date: 20180718
  Transmission Date: 20181010
  Serious: Yes (Hospitalization)
  Sender: FDA-Public Use
  Company Number: None

PATIENT
  Age: 62 Year
  Sex: Female

DRUGS (1)
  1. HYDROCHLOROTHIAZIDE/LISINOPRIL [Suspect]
     Active Substance: HYDROCHLOROTHIAZIDE\LISINOPRIL
     Indication: HYPERTENSION
     Dosage: ?          OTHER DOSE:12.5?20 MG;?
     Route: 048
     Dates: start: 20160531, end: 20180711

REACTIONS (4)
  - Wheezing [None]
  - Syncope [None]
  - Angioedema [None]
  - Cough [None]

NARRATIVE: CASE EVENT DATE: 20180710
